FAERS Safety Report 5100737-5 (Version None)
Quarter: 2006Q3

REPORT INFORMATION
  Report Type: 
  Country: None (occurrence: None)
  Receive Date: 20060906
  Receipt Date: 20060824
  Transmission Date: 20061208
  Serious: Yes (Hospitalization)
  Sender: FDA-Public Use
  Company Number: 2006103993

PATIENT
  Age: 50 Year
  Sex: Female

DRUGS (6)
  1. ALDACTONE [Suspect]
     Indication: DRUG USE FOR UNKNOWN INDICATION
     Dosage: 75 MG (75 MG, 1 IN 1 D),ORAL
     Route: 048
     Dates: end: 20060730
  2. FUROSEMIDE [Suspect]
     Indication: DRUG USE FOR UNKNOWN INDICATION
     Dosage: 40 MG, ORAL
     Route: 048
     Dates: end: 20060730
  3. NEXIUM [Concomitant]
  4. FORLAX (MACROGAL) [Concomitant]
  5. LANTUS (INSULN GLARGINE) [Concomitant]
  6. HUMALOG [Concomitant]

REACTIONS (7)
  - ABNORMAL BEHAVIOUR [None]
  - CONFUSIONAL STATE [None]
  - DEHYDRATION [None]
  - DISORIENTATION [None]
  - ENCEPHALITIS [None]
  - LIVER DISORDER [None]
  - SPEECH DISORDER [None]
